FAERS Safety Report 12777570 (Version 2)
Quarter: 2016Q4

REPORT INFORMATION
  Report Type: Spontaneous
  Country: US (occurrence: US)
  Receive Date: 20160924
  Receipt Date: 20161212
  Transmission Date: 20170207
  Serious: Yes (Death, Other)
  Sender: FDA-Public Use
  Company Number: PHHY2016US128622

PATIENT
  Age: 24 Year
  Sex: Male

DRUGS (9)
  1. CLOZAPINE. [Suspect]
     Active Substance: CLOZAPINE
     Indication: SUICIDAL IDEATION
  2. CITALOPRAM [Suspect]
     Active Substance: CITALOPRAM HYDROBROMIDE
     Indication: PSYCHOTIC DISORDER
  3. MODAFINIL. [Suspect]
     Active Substance: MODAFINIL
     Indication: SOMATIC DELUSION
     Dosage: 200 MG, QD
     Route: 065
  4. MODAFINIL. [Suspect]
     Active Substance: MODAFINIL
     Indication: SUICIDAL IDEATION
  5. CLOZAPINE. [Suspect]
     Active Substance: CLOZAPINE
     Indication: PSYCHOTIC DISORDER
  6. MODAFINIL. [Suspect]
     Active Substance: MODAFINIL
     Indication: PSYCHOTIC DISORDER
  7. CITALOPRAM [Suspect]
     Active Substance: CITALOPRAM HYDROBROMIDE
     Indication: SOMATIC DELUSION
     Dosage: 40 MG, QD
     Route: 065
  8. CLOZAPINE. [Suspect]
     Active Substance: CLOZAPINE
     Indication: SOMATIC DELUSION
     Dosage: 300 MG, QHS
     Route: 065
  9. CITALOPRAM [Suspect]
     Active Substance: CITALOPRAM HYDROBROMIDE
     Indication: SUICIDAL IDEATION

REACTIONS (4)
  - Completed suicide [Fatal]
  - Rebound effect [Unknown]
  - Sedation [Unknown]
  - Therapy non-responder [Unknown]
